FAERS Safety Report 5102453-2 (Version None)
Quarter: 2006Q3

REPORT INFORMATION
  Report Type: 
  Country: None (occurrence: None)
  Receive Date: 20060908
  Receipt Date: 20060817
  Transmission Date: 20061208
  Serious: Yes (Other)
  Sender: FDA-Public Use
  Company Number: US200606000438

PATIENT
  Age: 74 Year
  Sex: Female

DRUGS (5)
  1. FORTEO [Suspect]
     Indication: BONE DENSITY DECREASED
     Dates: start: 20060401
  2. FORTEO [Suspect]
  3. FORTEO [Concomitant]
  4. LIPITOR [Concomitant]
  5. FORTEO [Concomitant]

REACTIONS (5)
  - FEAR [None]
  - MACULAR HOLE [None]
  - MACULOPATHY [None]
  - MEDICAL DEVICE COMPLICATION [None]
  - PHARMACEUTICAL PRODUCT COMPLAINT [None]
